FAERS Safety Report 7296832-5 (Version None)
Quarter: 2011Q1

REPORT INFORMATION
  Report Type: 
  Country: None (occurrence: None)
  Receive Date: 20110216
  Receipt Date: 20101025
  Transmission Date: 20110831
  Serious: No
  Sender: FDA-Public Use
  Company Number: US-BAYER-201022990BCC

PATIENT
  Sex: Male
  Weight: 102.27 kg

DRUGS (2)
  1. ASPIRIN [Concomitant]
     Dosage: 81 MG, QD
  2. ALEVE [Suspect]
     Indication: ANALGESIC THERAPY
     Dosage: 2 DF, UNK
     Dates: start: 20101021

REACTIONS (1)
  - RASH [None]
